FAERS Safety Report 8782274 (Version 3)
Quarter: 2012Q4

REPORT INFORMATION
  Report Type: 
  Country: US (occurrence: US)
  Receive Date: 20120913
  Receipt Date: 20121126
  Transmission Date: 20130627
  Serious: No
  Sender: FDA-Public Use
  Company Number: US-VERTEX PHARMACEUTICAL INC.-2012-019934

PATIENT
  Age: 52 Year
  Sex: Female
  Weight: 67 kg

DRUGS (10)
  1. VX-950 (TELAPREVIR) [Suspect]
     Indication: HEPATITIS C
     Dosage: 750 mg, UNK
     Route: 048
  2. PEGASYS [Concomitant]
     Indication: HEPATITIS C
  3. RIBAVIRIN [Concomitant]
     Indication: HEPATITIS C
     Dosage: 200 mg, UNK
  4. RIBAVIRIN [Concomitant]
     Dosage: dose lowered
     Dates: start: 201210
  5. PRISTIQ [Concomitant]
     Dosage: 100 mg, UNK
  6. LORAZEPAM [Concomitant]
     Dosage: 1 mg, UNK
  7. TRAZODONE [Concomitant]
     Dosage: 150 mg, UNK
  8. VITAMIN D /00107901/ [Concomitant]
     Dosage: 1000 UNK, UNK
  9. VITAMIN C                          /00008001/ [Concomitant]
     Dosage: 500 mg, UNK
  10. B COMPLEX                          /00212701/ [Concomitant]

REACTIONS (7)
  - Headache [Unknown]
  - Skin sensitisation [Unknown]
  - Eye pain [Unknown]
  - Blood alkaline phosphatase increased [Recovered/Resolved]
  - Blister [Unknown]
  - Rash erythematous [Unknown]
  - Nausea [Not Recovered/Not Resolved]
